FAERS Safety Report 13145220 (Version 1)
Quarter: 2017Q1

REPORT INFORMATION
  Report Type: Spontaneous
  Country: FR (occurrence: FR)
  Receive Date: 20170124
  Receipt Date: 20170124
  Transmission Date: 20170428
  Serious: Yes (Other)
  Sender: FDA-Public Use
  Company Number: FR-ELI_LILLY_AND_COMPANY-FR201701006454

PATIENT
  Age: 74 Year
  Sex: Male

DRUGS (4)
  1. SERESTA [Suspect]
     Active Substance: OXAZEPAM
     Indication: PRODUCT USED FOR UNKNOWN INDICATION
     Dosage: 10 MG, UNKNOWN
     Route: 048
  2. QUETIAPINE. [Suspect]
     Active Substance: QUETIAPINE
     Indication: BIPOLAR DISORDER
     Dosage: 300 MG, QD
     Route: 048
     Dates: start: 20150331
  3. CYMBALTA [Suspect]
     Active Substance: DULOXETINE HYDROCHLORIDE
     Indication: PRODUCT USED FOR UNKNOWN INDICATION
     Dosage: 60 MG, UNKNOWN
     Route: 048
     Dates: start: 20150223
  4. THERALENE [Suspect]
     Active Substance: TRIMEPRAZINE
     Indication: SLEEP DISORDER
     Dosage: 15 MG, UNKNOWN
     Route: 048
     Dates: start: 20161004

REACTIONS (2)
  - Tremor [Unknown]
  - Tardive dyskinesia [Unknown]

NARRATIVE: CASE EVENT DATE: 20161103
